FAERS Safety Report 16286513 (Version 1)
Quarter: 2019Q2

REPORT INFORMATION
  Report Type: Spontaneous
  Country: US (occurrence: US)
  Receive Date: 20190507
  Receipt Date: 20190507
  Transmission Date: 20190711
  Serious: Yes (Life-Threatening, Hospitalization, Disabling)
  Sender: FDA-Public Use
  Company Number: None

PATIENT
  Age: 64 Year
  Sex: Female
  Weight: 72 kg

DRUGS (1)
  1. LOSARTAN POTASSIUM TABLETS USP 50 MG [Suspect]
     Active Substance: LOSARTAN POTASSIUM
     Indication: CARDIAC FAILURE
     Dosage: ?          QUANTITY:1 TABLET(S);?
     Route: 048
     Dates: start: 20121130, end: 20181202

REACTIONS (3)
  - Neoplasm malignant [None]
  - Hip fracture [None]
  - Renal neoplasm [None]

NARRATIVE: CASE EVENT DATE: 20190423
